FAERS Safety Report 4976927-9 (Version None)
Quarter: 2006Q2

REPORT INFORMATION
  Report Type: 
  Country: None (occurrence: None)
  Receive Date: 20060412
  Receipt Date: 20060327
  Transmission Date: 20061013
  Serious: Yes (Other)
  Sender: FDA-Public Use
  Company Number: TRP_0740_2006

PATIENT
  Age: 61 Year
  Sex: Female
  Weight: 101.6057 kg

DRUGS (6)
  1. RIBASPHERE [Suspect]
     Indication: HEPATITIS C
     Dosage: DF PO
     Route: 048
     Dates: start: 20051011, end: 20060314
  2. PEG-INTRON [Suspect]
     Indication: HEPATITIS C
     Dosage: DF SC
     Route: 058
     Dates: start: 20051011, end: 20060314
  3. PREVACID [Concomitant]
  4. EXTRA STRENGTH TYLENOL [Concomitant]
  5. TRIAMTERENE AND HYDROCHLOROTHIAZIDE [Concomitant]
  6. PHENYTOIN SODIUM [Concomitant]

REACTIONS (10)
  - ARTHRALGIA [None]
  - ASTHENIA [None]
  - BONE DISORDER [None]
  - CHAPPED LIPS [None]
  - EPISTAXIS [None]
  - GASTRIC ULCER [None]
  - MOUTH HAEMORRHAGE [None]
  - NECK PAIN [None]
  - PERIPHERAL COLDNESS [None]
  - PYREXIA [None]
